FAERS Safety Report 9114178 (Version 2)
Quarter: 2013Q1

REPORT INFORMATION
  Report Type: Spontaneous
  Country: CA (occurrence: CA)
  Receive Date: 20130208
  Receipt Date: 20130226
  Transmission Date: 20140127
  Serious: Yes (Hospitalization, Other)
  Sender: FDA-Public Use
  Company Number: CA-ABBOTT-13P-028-1046935-00

PATIENT
  Age: 59 None
  Sex: Female

DRUGS (15)
  1. BIAXIN [Suspect]
     Indication: TONSILLITIS
     Dosage: ORIGINALLY PRESCRIBED FOR 10 DAYS
     Route: 048
     Dates: start: 20071107, end: 20071108
  2. PLAQUENIL [Concomitant]
     Indication: RHEUMATOID ARTHRITIS
  3. AMITRIPTYLIN [Concomitant]
     Indication: FIBROMYALGIA
     Dosage: 25MG QHS
  4. METHOTREXATE [Concomitant]
     Indication: RHEUMATOID ARTHRITIS
     Dosage: 2.5MG 4 TAB Q AM AND 4 TAB Q PM 1 DAY A WEEK
  5. FOLIC ACID [Concomitant]
     Indication: VITAMIN SUPPLEMENTATION
     Dates: start: 20110122
  6. SYNTHROID [Concomitant]
     Indication: HYPOTHYROIDISM
     Dosage: 75MCG QD
  7. SYNTHROID [Concomitant]
     Dosage: 100MCG QD
  8. PANTOPRAZOLE [Concomitant]
     Indication: PRODUCT USED FOR UNKNOWN INDICATION
     Dosage: 40MG QD
  9. LOSEC [Concomitant]
     Indication: PRODUCT USED FOR UNKNOWN INDICATION
     Dosage: 20MG QD
  10. TYLENOL [Concomitant]
     Indication: PRODUCT USED FOR UNKNOWN INDICATION
     Route: 048
  11. CALCIUM/VITAMIN D [Concomitant]
     Indication: PRODUCT USED FOR UNKNOWN INDICATION
     Dosage: 500MG/400IU
  12. RANITIDINE [Concomitant]
     Indication: PRODUCT USED FOR UNKNOWN INDICATION
     Route: 048
  13. TRYPTAN [Concomitant]
     Indication: INSOMNIA
     Dosage: 2X10MG QD 30 MINS PRIOR TO BED
  14. FLOVENT [Concomitant]
     Indication: PRODUCT USED FOR UNKNOWN INDICATION
     Dosage: 125MCG INHALATION 2 PUFFS
     Route: 055
     Dates: start: 20071030
  15. SALBUTAMOL [Concomitant]
     Indication: PRODUCT USED FOR UNKNOWN INDICATION
     Dosage: 100MCG 2 PUFFS QID PRN
     Dates: start: 20071030

REACTIONS (41)
  - Fall [Unknown]
  - Asthenia [Unknown]
  - Myocardial ischaemia [Recovered/Resolved]
  - Myocardial infarction [Recovered/Resolved]
  - Stent placement [Recovered/Resolved]
  - Deafness bilateral [Unknown]
  - Anxiety [Recovered/Resolved]
  - Musculoskeletal pain [Unknown]
  - Panic attack [Recovered/Resolved]
  - Denture wearer [Recovered/Resolved]
  - Headache [Recovered/Resolved]
  - Oropharyngeal pain [Recovered/Resolved]
  - Respiratory tract congestion [Recovered/Resolved]
  - Anxiety [Recovered/Resolved]
  - Hallucination [Unknown]
  - Oedema peripheral [Unknown]
  - Feeling cold [Unknown]
  - Paraesthesia [Unknown]
  - Ageusia [Unknown]
  - Parosmia [Unknown]
  - Amnesia [Unknown]
  - Crying [Unknown]
  - Skin burning sensation [Unknown]
  - Tinnitus [Unknown]
  - Fungal infection [Unknown]
  - Vomiting [Unknown]
  - Tremor [Unknown]
  - Pain [Unknown]
  - Unevaluable event [Unknown]
  - Feeling abnormal [Unknown]
  - Swelling [Unknown]
  - Incorrect drug administration duration [Unknown]
  - Feeling of body temperature change [Unknown]
  - Generalised oedema [Unknown]
  - Arthralgia [Unknown]
  - Balance disorder [Unknown]
  - Swelling face [Unknown]
  - Dizziness [Unknown]
  - Sensation of heaviness [Unknown]
  - Fear [Unknown]
  - Neck pain [Unknown]
